FAERS Safety Report 9717550 (Version 2)
Quarter: 2013Q4

REPORT INFORMATION
  Report Type: Spontaneous
  Country: US (occurrence: US)
  Receive Date: 20131127
  Receipt Date: 20131127
  Transmission Date: 20140711
  Serious: No
  Sender: FDA-Public Use
  Company Number: US-GILEAD-2009-0020867

PATIENT
  Sex: Male
  Weight: 34.02 kg

DRUGS (14)
  1. LETAIRIS [Suspect]
     Indication: PULMONARY ARTERIAL HYPERTENSION
     Route: 048
     Dates: start: 20080803, end: 200906
  2. COUMADIN [Concomitant]
  3. REVATIO [Concomitant]
  4. CEFUROXIME [Concomitant]
  5. ASPIRIN LOW DOSE [Concomitant]
  6. AZITHROMYCIN [Concomitant]
  7. LASIX [Concomitant]
  8. SPIRONOLACTONE [Concomitant]
  9. COZAAR [Concomitant]
  10. FLOVENT [Concomitant]
  11. ALBUTEROL [Concomitant]
  12. PULMOZYME [Concomitant]
  13. POTASSIUM CHLORIDE [Concomitant]
  14. DAILY VITAMIN +IRON [Concomitant]

REACTIONS (2)
  - Platelet count decreased [Unknown]
  - White blood cell count decreased [Unknown]
